FAERS Safety Report 8287854-6 (Version None)
Quarter: 2012Q2

REPORT INFORMATION
  Report Type: 
  Country: None (occurrence: None)
  Receive Date: 20120416
  Receipt Date: 20120406
  Transmission Date: 20120825
  Serious: Yes (Hospitalization, Other)
  Sender: FDA-Public Use
  Company Number: US-ALEXION-A201200616

PATIENT
  Sex: Male

DRUGS (8)
  1. SOLIRIS [Suspect]
     Dosage: 900 MG, Q2W
     Route: 042
  2. FOLIC ACID [Concomitant]
     Dosage: UNK
  3. NEURONTIN [Concomitant]
     Dosage: UNK
  4. LACTULOSE [Concomitant]
     Dosage: UNK
  5. OMEPRAZOLE [Concomitant]
     Dosage: UNK
  6. PROPRANOLOL [Concomitant]
     Dosage: UNK UNK, Q2W
  7. RIFAXIMIN [Concomitant]
     Dosage: UNK
  8. COUMADIN [Concomitant]
     Dosage: UNK
     Dates: end: 20120301

REACTIONS (8)
  - INTERNATIONAL NORMALISED RATIO ABNORMAL [None]
  - URINARY TRACT INFECTION [None]
  - PLATELET COUNT DECREASED [None]
  - HEPATIC ENCEPHALOPATHY [None]
  - HAEMOPTYSIS [None]
  - BENIGN PROSTATIC HYPERPLASIA [None]
  - PULMONARY MASS [None]
  - AMMONIA INCREASED [None]
